FAERS Safety Report 22141795 (Version 1)
Quarter: 2023Q1

REPORT INFORMATION
  Report Type: Spontaneous
  Country: FR (occurrence: None)
  Receive Date: 20230326
  Receipt Date: 20230326
  Transmission Date: 20230418
  Serious: Yes (Death, Life-Threatening, Hospitalization)
  Sender: FDA-Public Use
  Company Number: None

PATIENT
  Age: 83 Year
  Sex: Male
  Weight: 95 kg

DRUGS (3)
  1. ELIQUIS [Suspect]
     Active Substance: APIXABAN
     Indication: Atrial fibrillation
     Dosage: 5 MG TWICE A DAY ORAL
     Route: 048
     Dates: start: 20230214, end: 20230310
  2. SPIRONOLACTONE [Concomitant]
     Active Substance: SPIRONOLACTONE
     Dates: start: 20230301, end: 20230310
  3. FUROSEMIDE [Concomitant]
     Active Substance: FUROSEMIDE
     Dates: start: 20230301, end: 20230310

REACTIONS (10)
  - Syncope [None]
  - Fall [None]
  - Vomiting [None]
  - Craniocerebral injury [None]
  - Skull fracture [None]
  - Subarachnoid haemorrhage [None]
  - Infection [None]
  - Disease complication [None]
  - Blood pressure increased [None]
  - Haemorrhagic stroke [None]

NARRATIVE: CASE EVENT DATE: 20230310
